FAERS Safety Report 16048293 (Version 3)
Quarter: 2022Q2

REPORT INFORMATION
  Report Type: Spontaneous
  Country: US (occurrence: US)
  Receive Date: 20190307
  Receipt Date: 20220606
  Transmission Date: 20220721
  Serious: Yes (Other)
  Sender: FDA-Public Use
  Company Number: US-PFIZER INC-2019089757

PATIENT
  Age: 84 Year
  Sex: Female
  Weight: 51.701 kg

DRUGS (2)
  1. CEFPODOXIME PROXETIL [Suspect]
     Active Substance: CEFPODOXIME PROXETIL
     Indication: Cystitis
     Dosage: 100 MG, 2X/DAY
     Route: 048
     Dates: start: 2018
  2. CEFPODOXIME PROXETIL [Suspect]
     Active Substance: CEFPODOXIME PROXETIL
     Dosage: UNK, 1X/DAY
     Route: 048

REACTIONS (3)
  - Deafness [Not Recovered/Not Resolved]
  - Condition aggravated [Unknown]
  - Off label use [Unknown]
